FAERS Safety Report 25823956 (Version 1)
Quarter: 2025Q3

REPORT INFORMATION
  Report Type: Spontaneous
  Country: EU (occurrence: EU)
  Receive Date: 20250919
  Receipt Date: 20250919
  Transmission Date: 20251020
  Serious: Yes (Death, Other)
  Sender: SANOFI AVENTIS
  Company Number: None

PATIENT
  Age: 56 Year
  Sex: Female

DRUGS (11)
  1. BEVACIZUMAB [Suspect]
     Active Substance: BEVACIZUMAB
     Dates: start: 201706
  2. CAPECITABINE [Suspect]
     Active Substance: CAPECITABINE
     Dates: start: 201706
  3. IRINOTECAN [Suspect]
     Active Substance: IRINOTECAN
     Dates: start: 201706
  4. IRINOTECAN [Suspect]
     Active Substance: IRINOTECAN
     Dates: start: 201810
  5. OXALIPLATIN [Suspect]
     Active Substance: OXALIPLATIN
     Indication: Colon cancer
  6. BEVACIZUMAB;CAPECITABINE;IRINOTECAN [Concomitant]
     Dates: start: 201706
  7. BEVACIZUMAB;FLUOROURACIL;FOLINIC ACID;OXALIPLATIN [Concomitant]
  8. FLUOROURACIL\LEUCOVORIN [Concomitant]
     Active Substance: FLUOROURACIL\LEUCOVORIN
     Indication: Neuropathy peripheral
  9. FLUOROURACIL [Concomitant]
     Active Substance: FLUOROURACIL
     Indication: Colon cancer
  10. LEUCOVORIN CALCIUM [Concomitant]
     Active Substance: LEUCOVORIN CALCIUM
     Indication: Colon cancer
  11. TIPIRACIL HYDROCHLORIDE\TRIFLURIDINE [Concomitant]
     Active Substance: TIPIRACIL HYDROCHLORIDE\TRIFLURIDINE
     Dates: start: 202003

REACTIONS (14)
  - Death [Fatal]
  - Ascites [Unknown]
  - Metastases to liver [Unknown]
  - Metastases to spleen [Unknown]
  - Metastases to bone [Unknown]
  - Metastasis [Unknown]
  - Leukopenia [Unknown]
  - Pleural effusion [Unknown]
  - Retroperitoneal lymphadenopathy [Unknown]
  - Jaundice [Unknown]
  - Disease progression [Unknown]
  - Paraesthesia [Unknown]
  - Diarrhoea [Unknown]
  - Nausea [Unknown]

NARRATIVE: CASE EVENT DATE: 20170101
